FAERS Safety Report 12505961 (Version 1)
Quarter: 2016Q2

REPORT INFORMATION
  Report Type: Spontaneous
  Country: FR (occurrence: FR)
  Receive Date: 20160628
  Receipt Date: 20160628
  Transmission Date: 20160815
  Serious: Yes (Other)
  Sender: FDA-Public Use
  Company Number: FR-BRISTOL-MYERS SQUIBB COMPANY-BMS-2016-049309

PATIENT
  Age: 63 Year
  Sex: Female

DRUGS (11)
  1. SYNTHOL                            /00891701/ [Concomitant]
     Indication: TENDONITIS
     Route: 065
  2. REPAGLINIDE. [Suspect]
     Active Substance: REPAGLINIDE
     Indication: DIABETES MELLITUS
     Dosage: 0.5 MG, QD
     Route: 048
  3. SECALIP [Concomitant]
     Active Substance: FENOFIBRATE
     Indication: HYPERCHOLESTEROLAEMIA
     Dosage: 300 MG, UNK
     Route: 065
  4. DICLOFENAC TEVA                    /00372302/ [Concomitant]
     Active Substance: DICLOFENAC SODIUM
     Indication: TENDONITIS
     Route: 065
  5. HARPAGOPHYTUM PROCUMBENS [Concomitant]
     Active Substance: HARPAGOPHYTUM PROCUMBENS ROOT
     Indication: RHEUMATIC DISORDER
     Route: 065
  6. TARKA [Suspect]
     Active Substance: TRANDOLAPRIL\VERAPAMIL HYDROCHLORIDE
     Indication: HYPERTENSION
     Route: 065
  7. RILMENIDINE [Suspect]
     Active Substance: RILMENIDINE
     Indication: HYPERTENSION
     Dosage: 1 MG, UNK
     Route: 048
  8. OLIVES [Concomitant]
     Active Substance: LIDOCAINE HYDROCHLORIDE
     Indication: HYPERCHOLESTEROLAEMIA
     Route: 065
  9. METFORMIN HYDROCHLORIDE. [Suspect]
     Active Substance: METFORMIN HYDROCHLORIDE
     Indication: DIABETES MELLITUS
     Dosage: 500 MG, QD
     Route: 048
  10. GARLIC                             /01570501/ [Concomitant]
     Active Substance: GARLIC
     Indication: HYPERCHOLESTEROLAEMIA
     Route: 065
  11. CINNAMON                           /01647501/ [Concomitant]
     Active Substance: CINNAMON
     Indication: DIABETES MELLITUS MANAGEMENT
     Route: 065

REACTIONS (5)
  - Hypertension [Unknown]
  - Hypoglycaemia [Unknown]
  - Drug ineffective [Unknown]
  - Wrong technique in product usage process [Unknown]
  - Intentional product misuse [Unknown]
